FAERS Safety Report 9802963 (Version 1)
Quarter: 2014Q1

REPORT INFORMATION
  Report Type: Spontaneous
  Country: US (occurrence: None)
  Receive Date: 20140106
  Receipt Date: 20140106
  Transmission Date: 20141002
  Serious: Yes (Hospitalization, Disabling)
  Sender: FDA-Public Use
  Company Number: None

PATIENT
  Age: 51 Year
  Sex: Female
  Weight: 50.8 kg

DRUGS (1)
  1. VORICONAZOLE [Suspect]
     Indication: ASPERGILLUS INFECTION
     Dosage: 1 TABLET
     Route: 048
     Dates: start: 20110518, end: 20110606

REACTIONS (3)
  - Myasthenia gravis [None]
  - Ophthalmoplegia [None]
  - Fatigue [None]
